FAERS Safety Report 4267459-4 (Version None)
Quarter: 2004Q1

REPORT INFORMATION
  Report Type: 
  Country: None (occurrence: None)
  Receive Date: 20040102
  Receipt Date: 20030923
  Transmission Date: 20041129
  Serious: No
  Sender: FDA-Public Use
  Company Number: BLOC000731

PATIENT
  Sex: Female

DRUGS (1)
  1. MYOBLOC [Suspect]
     Indication: TORTICOLLIS
     Dosage: INTRAMUSCULAR
     Route: 030
     Dates: start: 20021001, end: 20021001

REACTIONS (1)
  - DRUG EFFECT DECREASED [None]
